FAERS Safety Report 8823152 (Version 2)
Quarter: 2012Q4

REPORT INFORMATION
  Report Type: 
  Country: GB (occurrence: GB)
  Receive Date: 20121003
  Receipt Date: 20121112
  Transmission Date: 20130627
  Serious: Yes (Death)
  Sender: FDA-Public Use
  Company Number: GB-ROCHE-1137836

PATIENT
  Age: 61 Year
  Sex: Female
  Weight: 83 kg

DRUGS (8)
  1. LUCENTIS [Suspect]
     Indication: AGE-RELATED MACULAR DEGENERATION
     Route: 050
     Dates: start: 20111021
  2. LUCENTIS [Suspect]
     Route: 050
     Dates: start: 20120420
  3. AMITRIPTYLINE [Concomitant]
  4. ATENOLOL [Concomitant]
  5. BENDROFLUMETHIAZIDE [Concomitant]
  6. THYROXINE [Concomitant]
  7. CO-DYDRAMOL [Concomitant]
  8. IBUPROFEN [Concomitant]

REACTIONS (2)
  - Arrhythmogenic right ventricular dysplasia [Fatal]
  - Herpes zoster [Recovered/Resolved]
